FAERS Safety Report 8780776 (Version 2)
Quarter: 2012Q4

REPORT INFORMATION
  Report Type: 
  Country: US (occurrence: US)
  Receive Date: 20120913
  Receipt Date: 20121127
  Transmission Date: 20130627
  Serious: No
  Sender: FDA-Public Use
  Company Number: US-BAYER-2012-092187

PATIENT
  Age: 56 Year
  Sex: Male

DRUGS (3)
  1. LEVITRA [Suspect]
     Indication: ERECTILE DYSFUNCTION
     Dosage: UNK
     Route: 048
  2. WELLBUTRIN [Concomitant]
  3. GLIPIZIDE [Concomitant]

REACTIONS (3)
  - Drug ineffective [None]
  - Constipation [None]
  - Drug ineffective [None]
